FAERS Safety Report 9023902 (Version 1)
Quarter: 2013Q1

REPORT INFORMATION
  Report Type: Spontaneous
  Country: US (occurrence: US)
  Receive Date: 20130121
  Receipt Date: 20130121
  Transmission Date: 20140127
  Serious: No
  Sender: FDA-Public Use
  Company Number: US-PFIZER INC-2013020713

PATIENT
  Sex: Male

DRUGS (1)
  1. RAPAMUNE [Suspect]
     Dosage: 1 MG, UNK
     Route: 048

REACTIONS (3)
  - Nausea [Unknown]
  - Abdominal discomfort [Unknown]
  - Pain [Unknown]
